FAERS Safety Report 8588481-3 (Version None)
Quarter: 2012Q3

REPORT INFORMATION
  Report Type: 
  Country: None (occurrence: None)
  Receive Date: 20120813
  Receipt Date: 20120803
  Transmission Date: 20120928
  Serious: Yes (Other)
  Sender: FDA-Public Use
  Company Number: JP-VERTEX PHARMACEUTICALS INC.-AE-2012-006747

PATIENT
  Age: 32 Year
  Sex: Female

DRUGS (9)
  1. TELAVIC [Suspect]
     Indication: HEPATITIS C
     Route: 048
     Dates: start: 20120309, end: 20120405
  2. TELAVIC [Suspect]
     Route: 048
     Dates: start: 20120406, end: 20120412
  3. REBETOL [Concomitant]
     Route: 048
     Dates: start: 20120519
  4. TELAVIC [Suspect]
     Route: 048
     Dates: start: 20120427
  5. PEG-INTRON [Concomitant]
     Route: 058
     Dates: start: 20120427
  6. REBETOL [Concomitant]
     Indication: HEPATITIS C
     Route: 048
     Dates: start: 20120309, end: 20120405
  7. REBETOL [Concomitant]
     Route: 048
     Dates: start: 20120406, end: 20120412
  8. PEG-INTRON [Concomitant]
     Indication: HEPATITIS C
     Route: 058
     Dates: start: 20120309, end: 20120412
  9. REBETOL [Concomitant]
     Route: 048
     Dates: start: 20120427, end: 20120517

REACTIONS (3)
  - WHITE BLOOD CELL COUNT DECREASED [None]
  - ANAEMIA [None]
  - NEUTROPHIL COUNT DECREASED [None]
